FAERS Safety Report 5922953-2 (Version None)
Quarter: 2008Q4

REPORT INFORMATION
  Report Type: 
  Country: None (occurrence: None)
  Receive Date: 20081018
  Receipt Date: 20081008
  Transmission Date: 20090506
  Serious: Yes (Other)
  Sender: FDA-Public Use
  Company Number: US-PFIZER INC-2008084623

PATIENT
  Sex: Female
  Weight: 56.363 kg

DRUGS (3)
  1. LIPITOR [Suspect]
     Indication: BLOOD CHOLESTEROL INCREASED
     Route: 048
  2. ESTROGENIC SUBSTANCE [Concomitant]
  3. PROGESTIN INJ [Concomitant]

REACTIONS (4)
  - CONTUSION [None]
  - DRUG EFFECT DECREASED [None]
  - HELICOBACTER INFECTION [None]
  - WEIGHT DECREASED [None]
